FAERS Safety Report 12756773 (Version 1)
Quarter: 2016Q3

REPORT INFORMATION
  Report Type: Spontaneous
  Country: GB (occurrence: GB)
  Receive Date: 20160917
  Receipt Date: 20160917
  Transmission Date: 20161109
  Serious: Yes (Death)
  Sender: FDA-Public Use
  Company Number: GB-ASTRAZENECA-2016SE96940

PATIENT
  Age: 8 Year
  Sex: Female

DRUGS (1)
  1. FLUMIST QUADRIVALENT [Suspect]
     Active Substance: INFLUENZA A VIRUS A/CALIFORNIA/7/2009 (H1N1) LIVE(ATTENUATED) ANTIGEN\INFLUENZA A VIRUS A/TEXAS/50/2012 (H3N2) LIVE (ATTENUATED) ANTIGEN\INFLUENZA B VIRUS B/BRISBANE/60/2008 LIVE(ATTENUATED) ANTIGEN\INFLUENZA B VIRUS B/MASSACHUSETTS/2/2012 LIVE (ATTENUATED) ANTIGEN
     Indication: H1N1 INFLUENZA
     Route: 045
     Dates: start: 201511

REACTIONS (4)
  - Abdominal pain upper [Unknown]
  - Skin discolouration [Unknown]
  - Drug ineffective [Fatal]
  - H1N1 influenza [Fatal]

NARRATIVE: CASE EVENT DATE: 20160214
